FAERS Safety Report 6145473-1 (Version None)
Quarter: 2009Q2

REPORT INFORMATION
  Report Type: 
  Country: None (occurrence: None)
  Receive Date: 20090406
  Receipt Date: 20090331
  Transmission Date: 20091009
  Serious: Yes (Hospitalization, Other)
  Sender: FDA-Public Use
  Company Number: FR-PFIZER INC-2009192983

PATIENT

DRUGS (2)
  1. CELEBREX [Suspect]
     Indication: MONARTHRITIS
     Dosage: 1 DF, 1X/DAY
     Route: 048
     Dates: start: 20020101
  2. CELEBREX [Suspect]
     Indication: ARTHRALGIA

REACTIONS (2)
  - TRANSPLANT REJECTION [None]
  - TUBULOINTERSTITIAL NEPHRITIS [None]
